FAERS Safety Report 6310901-5 (Version None)
Quarter: 2009Q3

REPORT INFORMATION
  Report Type: 
  Country: None (occurrence: None)
  Receive Date: 20090812
  Receipt Date: 20090729
  Transmission Date: 20100115
  Serious: Yes (Hospitalization)
  Sender: FDA-Public Use
  Company Number: 001438

PATIENT
  Age: 13 Year
  Sex: Male
  Weight: 61 kg

DRUGS (5)
  1. OMEPRAZOLE [Suspect]
     Indication: OESOPHAGEAL DISORDER
     Dosage: (20 MG QD ORAL)
     Route: 048
     Dates: start: 20080620
  2. OMEPRAZOLE [Suspect]
     Indication: ORAL DISORDER
     Dosage: (20 MG QD ORAL)
     Route: 048
     Dates: start: 20080620
  3. TRIMETHOPRIM (TRIMETHOPRIM-SULPHAMETHOXAZOLE) [Suspect]
     Dosage: (400 MG BID ORAL)
     Route: 048
  4. THIOGUANINE [Suspect]
     Dosage: (60 MG/M2 QD, DAY 1-14 ORAL)
     Route: 048
  5. ONDANSETRON [Suspect]
     Dosage: (5 MG/M2, MAXIMUM 8 MG/M2)

REACTIONS (12)
  - DYSARTHRIA [None]
  - FACIAL PARESIS [None]
  - HAEMOGLOBIN DECREASED [None]
  - HAEMORRHAGE [None]
  - HEMIPARESIS [None]
  - MIGRAINE [None]
  - NERVOUS SYSTEM DISORDER [None]
  - PLATELET COUNT INCREASED [None]
  - SENSORY LOSS [None]
  - SWELLING FACE [None]
  - TRANSIENT ISCHAEMIC ATTACK [None]
  - VASCULITIS [None]
